FAERS Safety Report 11975284 (Version 3)
Quarter: 2019Q1

REPORT INFORMATION
  Report Type: Spontaneous
  Country: US (occurrence: US)
  Receive Date: 20160128
  Receipt Date: 20190220
  Transmission Date: 20190417
  Serious: Yes (Hospitalization, Other)
  Sender: FDA-Public Use
  Company Number: US-DSJP-DSU-2015-133629

PATIENT

DRUGS (3)
  1. BENICAR HCT [Suspect]
     Active Substance: HYDROCHLOROTHIAZIDE\OLMESARTAN MEDOXOMIL
     Indication: HYPERTENSION
     Dosage: 20/12.5MG, UNK
     Route: 048
     Dates: end: 2014
  2. BENICAR [Suspect]
     Active Substance: OLMESARTAN MEDOXOMIL
     Indication: HYPERTENSION
     Dosage: 20 MG, QD
     Route: 048
  3. BENICAR HCT [Suspect]
     Active Substance: HYDROCHLOROTHIAZIDE\OLMESARTAN MEDOXOMIL
     Dosage: 20/12.5 MG 0.5 TAB , QD
     Route: 048

REACTIONS (19)
  - Vertigo [Not Recovered/Not Resolved]
  - Acute kidney injury [Unknown]
  - Diverticulum [Unknown]
  - Umbilical hernia [Unknown]
  - Product administration error [Unknown]
  - Hepatic steatosis [Unknown]
  - Chills [Unknown]
  - Gastrooesophageal reflux disease [Unknown]
  - Haemorrhoids [Not Recovered/Not Resolved]
  - Cholecystitis chronic [Recovered/Resolved]
  - Large intestine polyp [Unknown]
  - Lipase increased [Recovered/Resolved]
  - Constipation [Unknown]
  - Hiatus hernia [Recovered/Resolved]
  - Sprue-like enteropathy [Recovering/Resolving]
  - Hyperhidrosis [Unknown]
  - Helicobacter test positive [Unknown]
  - Haemorrhoids [Unknown]
  - Gastroenteritis [Unknown]

NARRATIVE: CASE EVENT DATE: 2004
